FAERS Safety Report 10257614 (Version 1)
Quarter: 2014Q2

REPORT INFORMATION
  Report Type: Spontaneous
  Country: US (occurrence: None)
  Receive Date: 20140623
  Receipt Date: 20140623
  Transmission Date: 20141212
  Serious: No
  Sender: FDA-Public Use
  Company Number: None

PATIENT
  Age: 52 Year
  Sex: Male
  Weight: 73.03 kg

DRUGS (2)
  1. ATORVASTATIN CALCIUM [Suspect]
     Indication: BLOOD CHOLESTEROL INCREASED
     Dosage: X1 DAILY ONCE DAILY TAKEN BY MOUTH
     Route: 048
     Dates: start: 20140604, end: 20140618
  2. ATORVASTATIN CALCIUM [Suspect]
     Indication: BLOOD TRIGLYCERIDES INCREASED
     Dosage: X1 DAILY ONCE DAILY TAKEN BY MOUTH
     Route: 048
     Dates: start: 20140604, end: 20140618

REACTIONS (5)
  - Pain [None]
  - Swelling [None]
  - Haematochezia [None]
  - Lymphadenopathy [None]
  - Back disorder [None]
